FAERS Safety Report 4658931-3 (Version None)
Quarter: 2005Q2

REPORT INFORMATION
  Report Type: 
  Country: None (occurrence: None)
  Receive Date: 20050509
  Receipt Date: 20050418
  Transmission Date: 20051028
  Serious: Yes (Hospitalization)
  Sender: FDA-Public Use
  Company Number: JP_050306011

PATIENT
  Age: 89 Year
  Sex: Female

DRUGS (5)
  1. PERMAX [Suspect]
     Indication: CEREBROVASCULAR DISORDER
     Dosage: 50 UG DAY
     Dates: start: 20050301, end: 20050301
  2. PERMAX [Suspect]
     Indication: CONDITION AGGRAVATED
     Dosage: 50 UG DAY
     Dates: start: 20050301, end: 20050301
  3. PERMAX [Suspect]
     Indication: PARKINSONISM
     Dosage: 50 UG DAY
     Dates: start: 20050301, end: 20050301
  4. SYMMETREL [Concomitant]
  5. THEO-DUR [Concomitant]

REACTIONS (9)
  - BODY TEMPERATURE INCREASED [None]
  - COMA [None]
  - DEPRESSED LEVEL OF CONSCIOUSNESS [None]
  - DRUG TOXICITY [None]
  - HYPERCAPNIA [None]
  - PLATELET COUNT DECREASED [None]
  - PNEUMONIA [None]
  - SPUTUM RETENTION [None]
  - STATUS EPILEPTICUS [None]
